FAERS Safety Report 8498824-7 (Version None)
Quarter: 2012Q3

REPORT INFORMATION
  Report Type: 
  Country: None (occurrence: None)
  Receive Date: 20120710
  Receipt Date: 20120704
  Transmission Date: 20120928
  Serious: Yes (Hospitalization)
  Sender: FDA-Public Use
  Company Number: US-AMGEN-USASP2012041434

PATIENT
  Age: 73 Year
  Sex: Male

DRUGS (7)
  1. WARFARIN SODIUM [Concomitant]
  2. FLOMAX [Concomitant]
  3. ZANTAC [Concomitant]
  4. SENSIPAR [Suspect]
     Indication: DIALYSIS
     Route: 048
  5. SENSIPAR [Suspect]
     Indication: HYPERPARATHYROIDISM SECONDARY
  6. KEPPRA [Concomitant]
  7. DIOVAN [Concomitant]

REACTIONS (2)
  - CONVULSION [None]
  - FALL [None]
